FAERS Safety Report 8915999 (Version 3)
Quarter: 2019Q4

REPORT INFORMATION
  Report Type: Spontaneous
  Country: US (occurrence: US)
  Receive Date: 20121119
  Receipt Date: 20191010
  Transmission Date: 20200122
  Serious: Yes (Hospitalization, Other)
  Sender: FDA-Public Use
  Company Number: US-AMGEN-USASP2012073124

PATIENT
  Age: 60 Year
  Sex: Female

DRUGS (4)
  1. ENBREL [Suspect]
     Active Substance: ETANERCEPT
     Indication: PSORIATIC ARTHROPATHY
     Dosage: 50 MILLIGRAM, QWK
     Route: 065
  2. ENBREL [Suspect]
     Active Substance: ETANERCEPT
     Dosage: 50 MILLIGRAM, EVERY 6 DAYS
     Route: 065
  3. ENBREL [Suspect]
     Active Substance: ETANERCEPT
     Indication: PSORIASIS
     Dosage: 50 MG, 2 TIMES/WK
     Route: 058
     Dates: start: 200711
  4. METHOTREXATE. [Concomitant]
     Active Substance: METHOTREXATE

REACTIONS (15)
  - Muscle atrophy [Recovered/Resolved]
  - Meniscus injury [Recovered/Resolved]
  - Psoriasis [Recovered/Resolved]
  - Hypersensitivity [Unknown]
  - Swelling [Not Recovered/Not Resolved]
  - Dyspnoea [Not Recovered/Not Resolved]
  - Nasopharyngitis [Recovered/Resolved]
  - Lipoatrophy [Recovered/Resolved]
  - Plantar fasciitis [Recovered/Resolved]
  - Post procedural complication [Recovered/Resolved]
  - Diverticulitis [Recovered/Resolved]
  - Intentional product misuse [Unknown]
  - Foot deformity [Recovered/Resolved]
  - Herpes zoster [Recovered/Resolved]
  - Surgery [Unknown]

NARRATIVE: CASE EVENT DATE: 2008
